FAERS Safety Report 10984358 (Version 1)
Quarter: 2015Q2

REPORT INFORMATION
  Report Type: Report from Study
  Country: US (occurrence: US)
  Receive Date: 20150403
  Receipt Date: 20150403
  Transmission Date: 20150821
  Serious: Yes (Other)
  Sender: FDA-Public Use
  Company Number: US-SA-2015SA022613

PATIENT
  Age: 32 Year
  Sex: Female

DRUGS (1)
  1. AUBAGIO [Suspect]
     Active Substance: TERIFLUNOMIDE
     Indication: MULTIPLE SCLEROSIS
     Route: 048
     Dates: start: 20150217, end: 20150309

REACTIONS (7)
  - Cholecystectomy [Unknown]
  - Back pain [Unknown]
  - Migraine [Unknown]
  - Chest discomfort [Not Recovered/Not Resolved]
  - Chest pain [Unknown]
  - Pain [Not Recovered/Not Resolved]
  - Abdominal discomfort [Unknown]

NARRATIVE: CASE EVENT DATE: 2015
